FAERS Safety Report 17140555 (Version 2)
Quarter: 2020Q1

REPORT INFORMATION
  Report Type: Report from Study
  Country: DE (occurrence: DE)
  Receive Date: 20191211
  Receipt Date: 20200122
  Transmission Date: 20200409
  Serious: Yes (Hospitalization, Other)
  Sender: FDA-Public Use
  Company Number: PHHY2016DE078163

PATIENT
  Sex: Female
  Weight: 51 kg

DRUGS (4)
  1. GILENYA [Suspect]
     Active Substance: FINGOLIMOD HYDROCHLORIDE
     Indication: MULTIPLE SCLEROSIS
     Dosage: 0.5 MG, QD
     Route: 048
     Dates: start: 20160224, end: 20171216
  2. OPIPRAMOL [Concomitant]
     Active Substance: OPIPRAMOL
     Indication: DEPRESSION
     Dosage: 100 OT, UNK
     Route: 065
     Dates: start: 20151113
  3. GABAPENTIN. [Concomitant]
     Active Substance: GABAPENTIN
     Indication: HYPOAESTHESIA
     Dosage: 300 MG, UNK
     Route: 065
     Dates: start: 20160115
  4. TIZANIDINE. [Concomitant]
     Active Substance: TIZANIDINE
     Indication: MUSCLE TIGHTNESS
     Dosage: 6 MG
     Route: 065
     Dates: start: 20171218

REACTIONS (7)
  - Vitreous opacities [Unknown]
  - Multiple sclerosis relapse [Recovered/Resolved]
  - Sensory disturbance [Recovered/Resolved]
  - Paraesthesia [Unknown]
  - Multiple sclerosis relapse [Recovered/Resolved]
  - Movement disorder [Unknown]
  - Lenticular opacities [Recovered/Resolved]

NARRATIVE: CASE EVENT DATE: 20160517
